FAERS Safety Report 5448142-6 (Version None)
Quarter: 2007Q3

REPORT INFORMATION
  Report Type: 
  Country: None (occurrence: None)
  Receive Date: 20070803
  Receipt Date: 20070604
  Transmission Date: 20080115
  Serious: No
  Sender: FDA-Public Use
  Company Number: 200711740BWH

PATIENT
  Age: 69 Year
  Sex: Male

DRUGS (2)
  1. NEXAVAR [Suspect]
     Indication: RENAL CELL CARCINOMA STAGE UNSPECIFIED
     Dosage: 400 MG, BID, ORAL
     Route: 048
     Dates: start: 20070501
  2. ANTIHYPERTENSIVE MEDICATIONS NOS [Concomitant]

REACTIONS (2)
  - DYSPHONIA [None]
  - FOREIGN BODY TRAUMA [None]
